FAERS Safety Report 23881202 (Version 1)
Quarter: 2024Q2

REPORT INFORMATION
  Report Type: Spontaneous
  Country: AU (occurrence: AU)
  Receive Date: 20240521
  Receipt Date: 20240521
  Transmission Date: 20240716
  Serious: Yes (Other)
  Sender: FDA-Public Use
  Company Number: AU-SUN PHARMACEUTICAL INDUSTRIES LTD-2024R1-446760

PATIENT
  Age: 21 Year
  Sex: Female

DRUGS (2)
  1. TOBRAMYCIN SULFATE [Suspect]
     Active Substance: TOBRAMYCIN SULFATE
     Indication: Cystic fibrosis
     Dosage: 280 MILLIGRAM
     Route: 042
     Dates: start: 20190101, end: 20210203
  2. TOBRAMYCIN SULFATE [Suspect]
     Active Substance: TOBRAMYCIN SULFATE
     Indication: Pseudomonas infection

REACTIONS (2)
  - Deafness [Recovered/Resolved with Sequelae]
  - Ototoxicity [Recovered/Resolved with Sequelae]

NARRATIVE: CASE EVENT DATE: 20210128
